FAERS Safety Report 6904889-3 (Version None)
Quarter: 2010Q3

REPORT INFORMATION
  Report Type: 
  Country: None (occurrence: None)
  Receive Date: 20100804
  Receipt Date: 20090731
  Transmission Date: 20110219
  Serious: No
  Sender: FDA-Public Use
  Company Number: US-PFIZER INC-2009249391

PATIENT
  Sex: Male
  Weight: 90.703 kg

DRUGS (6)
  1. LYRICA [Suspect]
     Indication: PAIN
     Dosage: 150 MG, 2X/DAY
     Dates: start: 20090601
  2. LYRICA [Suspect]
     Indication: BONE PAIN
  3. LYRICA [Suspect]
     Indication: ARTHRITIS
  4. LYRICA [Suspect]
     Indication: ARTHRALGIA
  5. ATENOLOL [Concomitant]
     Dosage: UNK
  6. LISINOPRIL [Concomitant]
     Dosage: UNK

REACTIONS (2)
  - ABDOMINAL DISTENSION [None]
  - BLOOD URIC ACID INCREASED [None]
